FAERS Safety Report 7057792-5 (Version None)
Quarter: 2010Q4

REPORT INFORMATION
  Report Type: 
  Country: None (occurrence: None)
  Receive Date: 20101022
  Receipt Date: 20101012
  Transmission Date: 20110411
  Serious: Yes (Other)
  Sender: FDA-Public Use
  Company Number: FR-PFIZER INC-2010116386

PATIENT
  Age: 72 Year
  Sex: Male
  Weight: 60.5 kg

DRUGS (1)
  1. XALATAN [Suspect]
     Indication: OCULAR HYPERTENSION
     Dosage: 2 GTT, 1X/DAY
     Route: 047
     Dates: start: 20040101

REACTIONS (6)
  - ANAEMIA [None]
  - DIZZINESS [None]
  - GRANULOCYTE COUNT INCREASED [None]
  - HEADACHE [None]
  - RASH [None]
  - VERTIGO POSITIONAL [None]
